FAERS Safety Report 7629188-6 (Version None)
Quarter: 2011Q3

REPORT INFORMATION
  Report Type: 
  Country: None (occurrence: None)
  Receive Date: 20110722
  Receipt Date: 20110718
  Transmission Date: 20111222
  Serious: Yes (Hospitalization)
  Sender: FDA-Public Use
  Company Number: PHHO2011NL12243

PATIENT
  Sex: Female

DRUGS (10)
  1. METOPROLOL TARTRATE [Concomitant]
  2. ENALAPRIL MALEATE [Concomitant]
  3. ALENDRONATE SODIUM [Concomitant]
  4. SIMVASTATIN [Concomitant]
  5. LETROZOLE [Suspect]
     Indication: BREAST CANCER
     Dosage: 2.5 MG, UNK
     Route: 048
     Dates: start: 20110218, end: 20110516
  6. POLYTRIM [Concomitant]
  7. HYDROCHLOROTHIAZIDE [Concomitant]
  8. PANTOPRAZOLE [Concomitant]
  9. MESALAMINE [Concomitant]
  10. ACENOCOUMAROL [Concomitant]

REACTIONS (1)
  - VESTIBULAR DISORDER [None]
